FAERS Safety Report 6647890-X (Version None)
Quarter: 2010Q1

REPORT INFORMATION
  Report Type: 
  Country: None (occurrence: None)
  Receive Date: 20100324
  Receipt Date: 20100315
  Transmission Date: 20100710
  Serious: Yes (Other)
  Sender: FDA-Public Use
  Company Number: JP-ASTRAZENECA-2010SE11571

PATIENT
  Age: 69 Year
  Sex: Female

DRUGS (2)
  1. GEFITINIB [Suspect]
     Indication: REGIONAL CHEMOTHERAPY
     Route: 048
  2. GEFITINIB [Suspect]
     Dosage: EVERY OTHER DAY
     Route: 048

REACTIONS (2)
  - RASH [None]
  - SKIN DISORDER [None]
